FAERS Safety Report 14370022 (Version 2)
Quarter: 2018Q1

REPORT INFORMATION
  Report Type: Spontaneous
  Country: US (occurrence: US)
  Receive Date: 20180110
  Receipt Date: 20180119
  Transmission Date: 20180509
  Serious: No
  Sender: FDA-Public Use
  Company Number: US-HORIZON-PEN-0002-2018

PATIENT
  Sex: Male

DRUGS (2)
  1. PENNSAID [Suspect]
     Active Substance: DICLOFENAC SODIUM
     Indication: OSTEOARTHRITIS
     Dosage: AS NEEDED
     Route: 061
  2. VOLTAREN [Concomitant]
     Active Substance: DICLOFENAC SODIUM

REACTIONS (3)
  - Application site erythema [Not Recovered/Not Resolved]
  - Off label use [Unknown]
  - Chemical burn [Unknown]

NARRATIVE: CASE EVENT DATE: 20180101
